FAERS Safety Report 20050071 (Version 1)
Quarter: 2021Q4

REPORT INFORMATION
  Report Type: Spontaneous
  Country: US (occurrence: None)
  Receive Date: 20211109
  Receipt Date: 20211109
  Transmission Date: 20220303
  Serious: Yes (Disabling)
  Sender: FDA-Public Use
  Company Number: None

PATIENT
  Age: 67 Year
  Sex: Male
  Weight: 74.25 kg

DRUGS (12)
  1. TADALAFIL [Suspect]
     Active Substance: TADALAFIL
     Indication: Hypertonic bladder
     Dosage: OTHER QUANTITY : 1 TABLET(S);?FREQUENCY : DAILY;?
     Route: 048
     Dates: start: 20211007, end: 20211010
  2. FAMOTIDINE [Concomitant]
     Active Substance: FAMOTIDINE
  3. MISOPROSTOL [Concomitant]
     Active Substance: MISOPROSTOL
  4. BENICAR [Concomitant]
     Active Substance: OLMESARTAN MEDOXOMIL
  5. FINASTERIDE [Concomitant]
     Active Substance: FINASTERIDE
  6. PRAVASTATIN [Concomitant]
     Active Substance: PRAVASTATIN
  7. MELATONIN [Concomitant]
     Active Substance: MELATONIN
  8. VITAMIN B [Concomitant]
     Active Substance: VITAMIN B
  9. VITAMIN C [Concomitant]
     Active Substance: ASCORBIC ACID
  10. VITAMIN D [Concomitant]
     Active Substance: VITAMIN D NOS
  11. VITAMIN E [Concomitant]
     Active Substance: .ALPHA.-TOCOPHEROL
  12. TUMERIC W/CURCUMIN [Concomitant]

REACTIONS (5)
  - Muscular weakness [None]
  - Pain in extremity [None]
  - Back pain [None]
  - Drug interaction [None]
  - Muscular weakness [None]

NARRATIVE: CASE EVENT DATE: 20211012
